FAERS Safety Report 6338607 (Version 2)
Quarter: 2014Q3

REPORT INFORMATION
  Report Type: Spontaneous
  Country: JP (occurrence: JP)
  Receive Date: 20070621
  Receipt Date: 20140728
  Transmission Date: 20150326
  Serious: Yes (Hospitalization, Other)
  Sender: FDA-Public Use
  Company Number: JP-ELI_LILLY_AND_COMPANY-JP_040503161

PATIENT
  Age: 18 Year
  Sex: Male
  Weight: 70.2 kg

DRUGS (8)
  1. RISPERDAL [Concomitant]
     Active Substance: RISPERIDONE
     Dosage: 3 MG, 2/D
     Route: 048
     Dates: start: 20040301, end: 20040304
  2. RISPERDAL [Concomitant]
     Active Substance: RISPERIDONE
     Indication: SCHIZOPHRENIA
     Dosage: 6 MG, 2/D
     Route: 048
     Dates: start: 20040223, end: 20040229
  3. RISPERDAL [Concomitant]
     Active Substance: RISPERIDONE
     Dosage: 4 MG, 2/D
     Route: 048
     Dates: start: 20040326, end: 20060401
  4. RISPERDAL [Concomitant]
     Active Substance: RISPERIDONE
     Dosage: 6 MG, 2/D
     Route: 048
     Dates: start: 20040312, end: 20040325
  5. SILECE [Concomitant]
     Active Substance: FLUNITRAZEPAM
     Indication: INSOMNIA
     Dosage: 1 MG, DAILY (1/D)
     Route: 048
     Dates: start: 20040223
  6. RISPERDAL [Concomitant]
     Active Substance: RISPERIDONE
     Dosage: 4 MG, 2/D
     Route: 048
     Dates: start: 20040305, end: 20040311
  7. RISPERDAL [Concomitant]
     Active Substance: RISPERIDONE
     Dosage: 6 MG, 2/D
     Route: 048
     Dates: start: 20040402
  8. ZYPREXA [Suspect]
     Active Substance: OLANZAPINE
     Indication: SCHIZOPHRENIA
     Dosage: 10 MG, DAILY (1/D)
     Route: 048
     Dates: start: 20040319, end: 20040409

REACTIONS (6)
  - Hypertriglyceridaemia [Recovered/Resolved]
  - High density lipoprotein decreased [Recovering/Resolving]
  - Familial hypertriglyceridaemia [Unknown]
  - Weight increased [Unknown]
  - Increased appetite [Unknown]
  - Hepatic steatosis [Unknown]

NARRATIVE: CASE EVENT DATE: 200403
